FAERS Safety Report 24318731 (Version 1)
Quarter: 2024Q3

REPORT INFORMATION
  Report Type: Spontaneous
  Country: US (occurrence: None)
  Receive Date: 20240913
  Receipt Date: 20240913
  Transmission Date: 20241016
  Serious: No
  Sender: Public
  Company Number: None

PATIENT
  Age: 4 Week
  Sex: Female

DRUGS (1)
  1. BEYFORTUS [Suspect]
     Active Substance: NIRSEVIMAB-ALIP
     Dosage: 1 ML
     Dates: start: 20240911, end: 20240911

REACTIONS (1)
  - Inappropriate schedule of product administration [None]

NARRATIVE: CASE EVENT DATE: 20240911
